FAERS Safety Report 5945250-8 (Version None)
Quarter: 2008Q4

REPORT INFORMATION
  Report Type: 
  Country: None (occurrence: None)
  Receive Date: 20081107
  Receipt Date: 20081010
  Transmission Date: 20090506
  Serious: No
  Sender: FDA-Public Use
  Company Number: US-JNJFOC-20081003181

PATIENT
  Sex: Female
  Weight: 103.87 kg

DRUGS (6)
  1. INVEGA [Suspect]
     Indication: BIPOLAR DISORDER
     Route: 048
  2. CYMBALTA [Concomitant]
     Indication: NEURALGIA
     Route: 048
  3. LOVASTATIN [Concomitant]
     Indication: BLOOD CHOLESTEROL INCREASED
     Route: 048
  4. LEVOTHYROX [Concomitant]
     Indication: THYROID DISORDER
     Route: 048
  5. LISINOPRIL [Concomitant]
     Indication: BLOOD PRESSURE
     Route: 048
  6. JANUMET [Concomitant]
     Indication: DIABETES MELLITUS
     Dosage: 50/1000 MG TABLET
     Route: 048

REACTIONS (4)
  - HYPOKINESIA [None]
  - INSOMNIA [None]
  - IRRITABILITY [None]
  - MUSCLE SPASMS [None]
